FAERS Safety Report 20191866 (Version 2)
Quarter: 2021Q4

REPORT INFORMATION
  Report Type: Report from Study
  Country: CN (occurrence: CN)
  Receive Date: 20211216
  Receipt Date: 20211230
  Transmission Date: 20220303
  Serious: Yes (Other)
  Sender: FDA-Public Use
  Company Number: CN-BRISTOL-MYERS SQUIBB COMPANY-BMS-2021-086846

PATIENT
  Age: 56 Year
  Sex: Male

DRUGS (2)
  1. NIVOLUMAB [Suspect]
     Active Substance: NIVOLUMAB
     Indication: Non-small cell lung cancer
     Dosage: 360 MILLIGRAM, Q3WK
     Route: 041
     Dates: start: 20210513
  2. NIVOLUMAB [Suspect]
     Active Substance: NIVOLUMAB
     Dosage: 340 MILLIGRAM, Q3WK
     Route: 041
     Dates: start: 20210513

REACTIONS (3)
  - Hydrothorax [Unknown]
  - Bone pain [Unknown]
  - Off label use [Unknown]
